FAERS Safety Report 6968620-8 (Version None)
Quarter: 2010Q3

REPORT INFORMATION
  Report Type: 
  Country: None (occurrence: None)
  Receive Date: 20100903
  Receipt Date: 20100903
  Transmission Date: 20110219
  Serious: Yes (Other)
  Sender: FDA-Public Use
  Company Number: None

PATIENT
  Sex: Male
  Weight: 98.4306 kg

DRUGS (1)
  1. TAMSULOSIN HCL [Suspect]
     Indication: BENIGN PROSTATIC HYPERPLASIA
     Dosage: 0.4 MG CAPSULE 1-2 CAPS DAILY PO
     Route: 048
     Dates: start: 20100801

REACTIONS (3)
  - DIZZINESS [None]
  - HEADACHE [None]
  - PRODUCT SUBSTITUTION ISSUE [None]
